FAERS Safety Report 23228020 (Version 1)
Quarter: 2023Q4

REPORT INFORMATION
  Report Type: Spontaneous
  Country: US (occurrence: US)
  Receive Date: 20231125
  Receipt Date: 20231125
  Transmission Date: 20240109
  Serious: Yes (Other)
  Sender: FDA-Public Use
  Company Number: US-CADILA HEALTHCARE LIMITED-US-ZYDUS-100503

PATIENT

DRUGS (2)
  1. TRAMADOL [Suspect]
     Active Substance: TRAMADOL\TRAMADOL HYDROCHLORIDE
     Indication: Fibromyalgia
     Dosage: 50 MILLIGRAM, EVERY 6 HR AS NEEDED, FOR OVER 10 YEARS
     Route: 065
  2. TRAMADOL [Suspect]
     Active Substance: TRAMADOL\TRAMADOL HYDROCHLORIDE
     Indication: Pain

REACTIONS (7)
  - Chest discomfort [Recovering/Resolving]
  - Secretion discharge [Recovering/Resolving]
  - Neck pain [Recovering/Resolving]
  - Sneezing [Unknown]
  - Cough [Unknown]
  - Insomnia [Recovering/Resolving]
  - Drug withdrawal syndrome [Unknown]
